FAERS Safety Report 13919794 (Version 1)
Quarter: 2017Q3

REPORT INFORMATION
  Report Type: Spontaneous
  Country: US (occurrence: US)
  Receive Date: 20170830
  Receipt Date: 20170830
  Transmission Date: 20171127
  Serious: No
  Sender: FDA-Public Use
  Company Number: US-BECTON DICKINSON-2016BDN00452

PATIENT
  Sex: Female

DRUGS (1)
  1. CHLORAPREP [Suspect]
     Active Substance: CHLORHEXIDINE GLUCONATE\ISOPROPYL ALCOHOL
     Indication: INFECTION PROPHYLAXIS
     Dosage: UNK UNK, ONCE
     Route: 061
     Dates: start: 20161207, end: 20161207

REACTIONS (3)
  - Application site rash [Unknown]
  - Hypersensitivity [Unknown]
  - Application site pruritus [Unknown]

NARRATIVE: CASE EVENT DATE: 201612
